FAERS Safety Report 20142466 (Version 1)
Quarter: 2021Q4

REPORT INFORMATION
  Report Type: Spontaneous
  Country: CZ (occurrence: CZ)
  Receive Date: 20211202
  Receipt Date: 20211202
  Transmission Date: 20220303
  Serious: Yes (Life-Threatening, Hospitalization, Other)
  Sender: FDA-Public Use
  Company Number: CZ-ELI_LILLY_AND_COMPANY-CZ202111012922

PATIENT
  Age: 57 Year
  Sex: Male
  Weight: 92 kg

DRUGS (5)
  1. ETESEVIMAB [Suspect]
     Active Substance: ETESEVIMAB
     Indication: COVID-19
     Dosage: 1400 MG, SINGLE
     Route: 051
     Dates: start: 20211027, end: 20211027
  2. BAMLANIVIMAB [Suspect]
     Active Substance: BAMLANIVIMAB
     Indication: COVID-19
     Dosage: 700 MG, SINGLE
     Route: 051
     Dates: start: 20211027, end: 20211027
  3. PERINDOPRIL ARGININE [Concomitant]
     Active Substance: PERINDOPRIL ARGININE
     Indication: Hypertension
     Dosage: 5 MG, UNKNOWN
     Route: 048
  4. CETIRIZINE HYDROCHLORIDE [Concomitant]
     Active Substance: CETIRIZINE HYDROCHLORIDE
     Dosage: UNK, UNKNOWN
     Route: 065
  5. PARALEN [PARACETAMOL] [Concomitant]
     Dosage: UNK, UNKNOWN
     Route: 065

REACTIONS (5)
  - Presyncope [Recovered/Resolved]
  - Muscle twitching [Recovered/Resolved]
  - Hypotension [Recovered/Resolved]
  - Hyperhidrosis [Recovered/Resolved]
  - Pallor [Recovered/Resolved]

NARRATIVE: CASE EVENT DATE: 20211027
